FAERS Safety Report 11832466 (Version 1)
Quarter: 2015Q4

REPORT INFORMATION
  Report Type: Spontaneous
  Country: US (occurrence: US)
  Receive Date: 20151214
  Receipt Date: 20151214
  Transmission Date: 20160305
  Serious: No
  Sender: FDA-Public Use
  Company Number: US-PFIZER INC-2015393740

PATIENT
  Age: 78 Year
  Sex: Male

DRUGS (1)
  1. ADVIL PM [Suspect]
     Active Substance: DIPHENHYDRAMINE CITRATE\IBUPROFEN
     Dosage: TAKING THE ADVIL PM DURING THE DAYTIME

REACTIONS (3)
  - Product use issue [Unknown]
  - Wrong drug administered [Unknown]
  - Somnolence [Unknown]
